FAERS Safety Report 18069380 (Version 2)
Quarter: 2021Q4

REPORT INFORMATION
  Report Type: Report from Study
  Country: CO (occurrence: CO)
  Receive Date: 20200725
  Receipt Date: 20211019
  Transmission Date: 20220304
  Serious: Yes (Hospitalization, Other)
  Sender: FDA-Public Use
  Company Number: PHHY2017CO083125

PATIENT
  Age: 24 Year
  Sex: Female
  Weight: 47 kg

DRUGS (6)
  1. JADENU [Suspect]
     Active Substance: DEFERASIROX
     Indication: Iron overload
     Dosage: 500 MG, BID
     Route: 048
     Dates: start: 20160729
  2. JADENU [Suspect]
     Active Substance: DEFERASIROX
     Dosage: 360 MG, QD
     Route: 048
     Dates: start: 20190301
  3. FOLIC ACID [Concomitant]
     Active Substance: FOLIC ACID
     Indication: Sickle cell anaemia
     Dosage: UNK, QD (SINCE THE PATIENT WAS 10 YEARS OLD)
     Route: 048
  4. ASPIRIN [Concomitant]
     Active Substance: ASPIRIN
     Indication: Product used for unknown indication
     Dosage: UNK
     Route: 065
  5. ASPIRIN [Concomitant]
     Active Substance: ASPIRIN
     Indication: Sickle cell anaemia
     Dosage: UNK, QD (SINCE THE PATIENT WAS 10 YEARS OLD)
     Route: 048
  6. HYDROXYUREA [Concomitant]
     Active Substance: HYDROXYUREA
     Indication: Sickle cell anaemia
     Dosage: 1 G, Q12H (SINCE THE PATIENT WAS 10 YEARS OLD)
     Route: 048

REACTIONS (10)
  - Haemoglobin decreased [Unknown]
  - Back pain [Recovering/Resolving]
  - Haemolysis [Unknown]
  - Arthralgia [Unknown]
  - Headache [Unknown]
  - Asthenia [Unknown]
  - Cough [Not Recovered/Not Resolved]
  - Pulmonary pain [Not Recovered/Not Resolved]
  - Vomiting [Unknown]
  - Malaise [Unknown]

NARRATIVE: CASE EVENT DATE: 20170526
